FAERS Safety Report 18199201 (Version 3)
Quarter: 2020Q4

REPORT INFORMATION
  Report Type: Spontaneous
  Country: IT (occurrence: IT)
  Receive Date: 20200826
  Receipt Date: 20201029
  Transmission Date: 20210113
  Serious: Yes (Hospitalization, Other)
  Sender: FDA-Public Use
  Company Number: IT-PFIZER INC-2020325973

PATIENT
  Age: 71 Year
  Sex: Male

DRUGS (12)
  1. DARUNAVIR AND COBICISTAT [Suspect]
     Active Substance: COBICISTAT\DARUNAVIR ETHANOLATE
     Indication: COVID-19
     Dosage: UNK, DAILY (800/150MG, DAILY FOR 7 DAYS)
  2. AZITHROMYCIN ANHYDROUS. [Suspect]
     Active Substance: AZITHROMYCIN ANHYDROUS
     Indication: COVID-19
     Dosage: 500 MG, DAILY (D: 5)
  3. LINEZOLID. [Suspect]
     Active Substance: LINEZOLID
     Indication: LOWER RESPIRATORY TRACT INFECTION BACTERIAL
     Dosage: UNK
  4. PIPERACILLIN/TAZOBACTAM [Suspect]
     Active Substance: PIPERACILLIN SODIUM\TAZOBACTAM SODIUM
     Indication: LOWER RESPIRATORY TRACT INFECTION BACTERIAL
     Dosage: UNK
  5. DAPTOMYCIN. [Suspect]
     Active Substance: DAPTOMYCIN
     Indication: LOWER RESPIRATORY TRACT INFECTION BACTERIAL
     Dosage: UNK
  6. OXACILLIN [Suspect]
     Active Substance: OXACILLIN SODIUM
     Indication: LOWER RESPIRATORY TRACT INFECTION BACTERIAL
     Dosage: UNK
  7. MEROPENEM. [Suspect]
     Active Substance: MEROPENEM
     Indication: LOWER RESPIRATORY TRACT INFECTION BACTERIAL
     Dosage: UNK
  8. CEFTRIAXONE. [Suspect]
     Active Substance: CEFTRIAXONE
     Indication: LOWER RESPIRATORY TRACT INFECTION BACTERIAL
     Dosage: UNK
  9. VITAMIN C [Suspect]
     Active Substance: ASCORBIC ACID
     Dosage: 160 MG (TOTAL DOSE)
     Route: 042
  10. HYDROXYCHLOROQUINE [Suspect]
     Active Substance: HYDROXYCHLOROQUINE
     Indication: COVID-19
     Dosage: 400 MG, 2X/DAY FOR 24 DAYS
  11. VITAMIN C [Suspect]
     Active Substance: ASCORBIC ACID
     Indication: SEPSIS
     Dosage: 50 MG/KG, 4X/DAY (HIGH DOSE)
     Route: 042
  12. LOPINAVIR/RITONAVIR [Suspect]
     Active Substance: LOPINAVIR\RITONAVIR
     Indication: COVID-19
     Dosage: 200/50 MG

REACTIONS (5)
  - Acute kidney injury [Recovering/Resolving]
  - Product use in unapproved indication [Unknown]
  - Toxicity to various agents [Recovering/Resolving]
  - Oxalosis [Recovering/Resolving]
  - Off label use [Unknown]
